FAERS Safety Report 7759196-6 (Version None)
Quarter: 2011Q3

REPORT INFORMATION
  Report Type: 
  Country: None (occurrence: None)
  Receive Date: 20110919
  Receipt Date: 20110824
  Transmission Date: 20111222
  Serious: No
  Sender: FDA-Public Use
  Company Number: DE-UCBSA-039194

PATIENT
  Age: 49 Year
  Sex: Female
  Weight: 60 kg

DRUGS (7)
  1. PREDNISOLONE [Concomitant]
     Route: 048
     Dates: start: 20110710, end: 20110717
  2. PREDNISOLONE [Concomitant]
     Dates: start: 20110526, end: 20110101
  3. PREDNISOLONE [Concomitant]
     Route: 048
     Dates: start: 20110620, end: 20110709
  4. CERTOLIZUMAB PEGOL [Suspect]
     Indication: RHEUMATOID ARTHRITIS
     Dosage: 400 MG, 3 DOSES RECEIVED
     Route: 058
     Dates: start: 20110704, end: 20110809
  5. METHOTREXATE [Concomitant]
     Dosage: TAKING FOR YEARS
     Route: 058
  6. PREDNISOLONE [Concomitant]
     Indication: RHEUMATOID ARTHRITIS
     Dates: start: 20110519, end: 20110101
  7. PREDNISOLONE [Concomitant]
     Route: 048
     Dates: start: 20110718

REACTIONS (1)
  - ORAL CANDIDIASIS [None]
